FAERS Safety Report 8793472 (Version 2)
Quarter: 2012Q4

REPORT INFORMATION
  Report Type: 
  Country: US (occurrence: US)
  Receive Date: 20120918
  Receipt Date: 20120924
  Transmission Date: 20130627
  Serious: Yes (Other)
  Sender: FDA-Public Use
  Company Number: CHPA2012US019958

PATIENT
  Age: 21 Year
  Sex: Male

DRUGS (1)
  1. PREVACID 24HR 15MG [Suspect]
     Dosage: 30 mg, QD
     Route: 048

REACTIONS (5)
  - Acne [Recovered/Resolved]
  - Laceration [Recovered/Resolved]
  - Infection [Recovered/Resolved]
  - Overdose [Unknown]
  - Incorrect drug administration duration [Unknown]
